FAERS Safety Report 8423637 (Version 3)
Quarter: 2016Q1

REPORT INFORMATION
  Report Type: Report from Study
  Country: US (occurrence: US)
  Receive Date: 20120224
  Receipt Date: 20160126
  Transmission Date: 20160526
  Serious: Yes (Hospitalization, Other)
  Sender: FDA-Public Use
  Company Number: US-AMGEN-USASP2012010784

PATIENT
  Age: 48 Year
  Sex: Female

DRUGS (2)
  1. ENBREL [Suspect]
     Active Substance: ETANERCEPT
     Indication: PSORIATIC ARTHROPATHY
  2. ENBREL [Suspect]
     Active Substance: ETANERCEPT
     Indication: RHEUMATOID ARTHRITIS
     Dosage: 50 MG, QWK
     Route: 065
     Dates: start: 20101111

REACTIONS (5)
  - Aphasia [Not Recovered/Not Resolved]
  - Oral herpes [Unknown]
  - Mobility decreased [Not Recovered/Not Resolved]
  - Cerebrovascular accident [Unknown]
  - Abdominal hernia repair [Unknown]

NARRATIVE: CASE EVENT DATE: 201111
